FAERS Safety Report 11319399 (Version 4)
Quarter: 2015Q3

REPORT INFORMATION
  Report Type: Spontaneous
  Country: DK (occurrence: DK)
  Receive Date: 20150729
  Receipt Date: 20150810
  Transmission Date: 20151125
  Serious: Yes (Death, Hospitalization, Other)
  Sender: FDA-Public Use
  Company Number: PHHY2015DK087883

PATIENT
  Age: 42 Year
  Sex: Male

DRUGS (5)
  1. TACROLIMUS. [Suspect]
     Active Substance: TACROLIMUS
     Indication: PROPHYLAXIS AGAINST TRANSPLANT REJECTION
     Dosage: UNK
     Route: 065
  2. PREDNISOLONE. [Suspect]
     Active Substance: PREDNISOLONE
     Indication: PROPHYLAXIS AGAINST TRANSPLANT REJECTION
     Dosage: UNK
     Route: 065
  3. METHYLPREDNISOLONE. [Suspect]
     Active Substance: METHYLPREDNISOLONE
     Indication: PROPHYLAXIS AGAINST TRANSPLANT REJECTION
     Route: 065
  4. EVEROLIMUS [Suspect]
     Active Substance: EVEROLIMUS
     Indication: PROPHYLAXIS AGAINST TRANSPLANT REJECTION
     Route: 065
  5. AZATHIOPRINE. [Suspect]
     Active Substance: AZATHIOPRINE
     Indication: PROPHYLAXIS AGAINST TRANSPLANT REJECTION
     Route: 065

REACTIONS (5)
  - Death [Fatal]
  - Cytomegalovirus infection [Unknown]
  - Bronchopulmonary aspergillosis [Unknown]
  - Lung infiltration [Unknown]
  - Lung transplant rejection [Unknown]
